FAERS Safety Report 5329907-8 (Version None)
Quarter: 2007Q2

REPORT INFORMATION
  Report Type: 
  Country: None (occurrence: None)
  Receive Date: 20070521
  Receipt Date: 20070510
  Transmission Date: 20071010
  Serious: Yes (Hospitalization)
  Sender: FDA-Public Use
  Company Number: US-JNJFOC-20070502959

PATIENT
  Sex: Female
  Weight: 56.7 kg

DRUGS (10)
  1. FENTANYL TRANSDERMAL SYSTEM [Suspect]
     Route: 062
  2. FENTANYL TRANSDERMAL SYSTEM [Suspect]
     Route: 062
  3. FENTANYL TRANSDERMAL SYSTEM [Suspect]
     Indication: PAIN
     Route: 062
  4. RELPAX [Concomitant]
     Indication: MIGRAINE
     Dosage: AS NEEDED
     Route: 048
  5. SKELAXIN [Concomitant]
     Indication: MUSCLE RELAXANT THERAPY
     Dosage: AS NEEDED
     Route: 048
  6. XODOL [Concomitant]
     Indication: BREAKTHROUGH PAIN
     Dosage: 10/300MG
     Route: 048
  7. WELLBUTRIN [Concomitant]
     Indication: DEPRESSION
     Route: 048
  8. CLONOPIN [Concomitant]
     Indication: ANXIETY
     Route: 048
  9. AMBIEN [Concomitant]
     Indication: SLEEP DISORDER
     Route: 048
  10. SEROQUEL [Concomitant]
     Indication: SLEEP DISORDER
     Route: 048

REACTIONS (4)
  - DRUG WITHDRAWAL SYNDROME [None]
  - MULTIPLE FRACTURES [None]
  - ROAD TRAFFIC ACCIDENT [None]
  - THERAPEUTIC PRODUCT INEFFECTIVE [None]
